FAERS Safety Report 20109466 (Version 1)
Quarter: 2021Q4

REPORT INFORMATION
  Report Type: Spontaneous
  Country: US (occurrence: US)
  Receive Date: 20211124
  Receipt Date: 20211124
  Transmission Date: 20220304
  Serious: Yes (Other)
  Sender: FDA-Public Use
  Company Number: US-GLAXOSMITHKLINE-US2021GSK239008

PATIENT
  Sex: Male

DRUGS (4)
  1. ZANTAC [Suspect]
     Active Substance: RANITIDINE HYDROCHLORIDE
     Indication: Epigastric discomfort
     Dosage: 150 MG, QD
     Route: 065
     Dates: start: 200801, end: 202003
  2. ZANTAC [Suspect]
     Active Substance: RANITIDINE HYDROCHLORIDE
     Indication: Epigastric discomfort
     Dosage: 150 MG, QD
     Route: 065
     Dates: start: 200801, end: 202003
  3. RANITIDINE [Suspect]
     Active Substance: RANITIDINE
     Indication: Epigastric discomfort
     Dosage: 150 MG, QD
     Route: 065
     Dates: start: 200805, end: 201901
  4. RANITIDINE [Suspect]
     Active Substance: RANITIDINE
     Indication: Epigastric discomfort
     Dosage: 150 MG, QD
     Route: 065
     Dates: start: 200805, end: 201901

REACTIONS (4)
  - Pancreatic carcinoma [Unknown]
  - Gastric cancer [Unknown]
  - Haematological malignancy [Unknown]
  - Brain neoplasm malignant [Unknown]
